FAERS Safety Report 14809033 (Version 1)
Quarter: 2018Q2

REPORT INFORMATION
  Report Type: Report from Study
  Country: US (occurrence: US)
  Receive Date: 20180425
  Receipt Date: 20180425
  Transmission Date: 20180711
  Serious: Yes (Hospitalization, Other)
  Sender: FDA-Public Use
  Company Number: US-CANTON LABORATORIES, LLC-2046505

PATIENT
  Age: 16 Year
  Sex: Male
  Weight: 44 kg

DRUGS (4)
  1. NAPROSYN [Suspect]
     Active Substance: NAPROXEN
     Indication: ANALGESIC THERAPY
     Route: 050
  2. BACLOFEN. [Suspect]
     Active Substance: BACLOFEN
     Route: 065
  3. VANCOMYCIN HYDROCHLORIDE. [Suspect]
     Active Substance: VANCOMYCIN HYDROCHLORIDE
     Route: 065
  4. CEFTAZIDIME. [Concomitant]
     Active Substance: CEFTAZIDIME
     Route: 065

REACTIONS (4)
  - Hypotension [Unknown]
  - Acute kidney injury [Recovered/Resolved]
  - Coma [Recovered/Resolved]
  - Toxicity to various agents [Unknown]
